FAERS Safety Report 17602432 (Version 2)
Quarter: 2021Q2

REPORT INFORMATION
  Report Type: Spontaneous
  Country: US (occurrence: CA)
  Receive Date: 20200330
  Receipt Date: 20210520
  Transmission Date: 20210716
  Serious: No
  Sender: FDA-Public Use
  Company Number: US-BIOGEN-2020BI00853104

PATIENT
  Age: 18 Year
  Sex: Female
  Weight: 79 kg

DRUGS (1)
  1. SPINRAZA [Suspect]
     Active Substance: NUSINERSEN
     Indication: SPINAL MUSCULAR ATROPHY
     Route: 065
     Dates: start: 20170724

REACTIONS (9)
  - Nausea [Unknown]
  - Post procedural complication [Unknown]
  - Visual field defect [Unknown]
  - Neck pain [Unknown]
  - Mobility decreased [Unknown]
  - Headache [Unknown]
  - Vomiting [Recovered/Resolved]
  - Post lumbar puncture syndrome [Unknown]
  - Post lumbar puncture syndrome [Recovered/Resolved]

NARRATIVE: CASE EVENT DATE: 20190912
